FAERS Safety Report 5192483-7 (Version None)
Quarter: 2006Q4

REPORT INFORMATION
  Report Type: 
  Country: None (occurrence: None)
  Receive Date: 20061220
  Receipt Date: 20061211
  Transmission Date: 20070319
  Serious: Yes (Hospitalization)
  Sender: FDA-Public Use
  Company Number: 2006152316

PATIENT
  Age: 72 Year
  Sex: Female

DRUGS (6)
  1. SULFASALAZINE [Suspect]
     Dosage: 4 DF (1 IN 1 D), ORAL
     Route: 048
     Dates: start: 19960515, end: 20060620
  2. SPIRONOLACTONE [Concomitant]
  3. DIGOXIN [Concomitant]
  4. DICLOFENAC SODIUM [Concomitant]
  5. FUROSEMIDE [Concomitant]
  6. PANTOPRAZOLE SODIUM [Concomitant]

REACTIONS (5)
  - BREAST CANCER [None]
  - INFLAMMATION [None]
  - LYMPHADENOPATHY [None]
  - PERICARDIAL EFFUSION [None]
  - PLEURAL EFFUSION [None]
